FAERS Safety Report 21504539 (Version 1)
Quarter: 2022Q4

REPORT INFORMATION
  Report Type: Spontaneous
  Country: CN (occurrence: CN)
  Receive Date: 20221025
  Receipt Date: 20221025
  Transmission Date: 20230112
  Serious: Yes (Hospitalization, Other)
  Sender: FDA-Public Use
  Company Number: CN-NOVARTISPH-NVSC2022CN235654

PATIENT
  Age: 65 Year
  Sex: Female

DRUGS (2)
  1. VOLTAREN [Suspect]
     Active Substance: DICLOFENAC SODIUM
     Indication: Analgesic therapy
     Dosage: 25 MG, TID
     Route: 048
     Dates: start: 20220108, end: 20220224
  2. DEXAMETHASONE ACETATE [Suspect]
     Active Substance: DEXAMETHASONE ACETATE
     Indication: Inflammation
     Dosage: 0.75 MG, TID
     Route: 048
     Dates: start: 20220108, end: 20220224

REACTIONS (12)
  - Upper gastrointestinal haemorrhage [Recovering/Resolving]
  - Faeces discoloured [Recovering/Resolving]
  - Malnutrition [Recovering/Resolving]
  - Marasmus [Recovering/Resolving]
  - Pain [Recovering/Resolving]
  - Muscular weakness [Recovering/Resolving]
  - Anaemia [Recovering/Resolving]
  - Abdominal pain upper [Recovering/Resolving]
  - Decreased appetite [Recovering/Resolving]
  - Nausea [Recovering/Resolving]
  - Vomiting [Recovering/Resolving]
  - Dizziness [Recovering/Resolving]

NARRATIVE: CASE EVENT DATE: 20220101
